FAERS Safety Report 7463154-9 (Version None)
Quarter: 2011Q2

REPORT INFORMATION
  Report Type: 
  Country: None (occurrence: None)
  Receive Date: 20110506
  Receipt Date: 20110503
  Transmission Date: 20111010
  Serious: Yes (Other)
  Sender: FDA-Public Use
  Company Number: US-PFIZER INC-2011023152

PATIENT
  Sex: Male

DRUGS (10)
  1. LISINOPRIL [Concomitant]
     Indication: HYPERTENSION
     Dosage: UNK
     Dates: start: 20010101, end: 20100801
  2. DEPAKOTE [Concomitant]
     Indication: HIP DYSPLASIA
     Dosage: UNK
     Dates: start: 20010101, end: 20100801
  3. DIVALPROEX [Concomitant]
     Indication: CONVULSION
     Dosage: UNK
     Dates: start: 19960101, end: 20090901
  4. LEXAPRO [Concomitant]
     Indication: DEPRESSION
     Dosage: UNK
     Dates: start: 20010101, end: 20100801
  5. HYDROCODONE [Concomitant]
     Indication: HIP DYSPLASIA
     Dosage: UNK
     Dates: start: 20050101
  6. PROAIR HFA [Concomitant]
     Indication: ASTHMA
     Dosage: UNK
     Dates: start: 20050101
  7. SYMBICORT [Concomitant]
     Indication: ASTHMA
     Dosage: UNK
     Dates: start: 20050101
  8. CHANTIX [Suspect]
     Indication: SMOKING CESSATION THERAPY
     Dosage: UNK
     Dates: start: 20080623, end: 20090801
  9. WELLBUTRIN [Concomitant]
     Indication: DEPRESSION
     Dosage: UNK
     Dates: start: 20010101, end: 20100801
  10. PREDNISONE [Concomitant]
     Indication: HIP DYSPLASIA
     Dosage: UNK
     Dates: start: 20010101, end: 20100801

REACTIONS (6)
  - DEPRESSION [None]
  - AGGRESSION [None]
  - ANGER [None]
  - INTENTIONAL OVERDOSE [None]
  - SUICIDE ATTEMPT [None]
  - ABNORMAL DREAMS [None]
